FAERS Safety Report 24903169 (Version 1)
Quarter: 2025Q1

REPORT INFORMATION
  Report Type: Spontaneous
  Country: CA (occurrence: CA)
  Receive Date: 20250130
  Receipt Date: 20250130
  Transmission Date: 20250408
  Serious: Yes (Death, Hospitalization, Other)
  Sender: CSL BEHRING
  Company Number: CA-BEH-2025193631

PATIENT
  Age: 79 Year
  Sex: Female

DRUGS (1)
  1. HUMAN IMMUNOGLOBULIN G [Suspect]
     Active Substance: HUMAN IMMUNOGLOBULIN G
     Indication: Secondary immunodeficiency
     Dosage: 6 G, QW
     Route: 058

REACTIONS (7)
  - Cardiac arrest [Fatal]
  - Face injury [Fatal]
  - Fall [Fatal]
  - Fatigue [Fatal]
  - Multiple fractures [Fatal]
  - Somnolence [Fatal]
  - Off label use [Unknown]
